FAERS Safety Report 9531163 (Version 2)
Quarter: 2013Q4

REPORT INFORMATION
  Report Type: Report from Study
  Country: BR (occurrence: BR)
  Receive Date: 20130918
  Receipt Date: 20131114
  Transmission Date: 20140711
  Serious: Yes (Death, Hospitalization, Other)
  Sender: FDA-Public Use
  Company Number: PHHY2013BR103406

PATIENT
  Age: 91 Year
  Sex: Female
  Weight: 40 kg

DRUGS (1)
  1. DIOVAN [Suspect]
     Indication: HYPERTENSION
     Dosage: 1 DF, (80 MG), DAILY
     Route: 048
     Dates: end: 201104

REACTIONS (3)
  - Pneumonia [Fatal]
  - Dyspnoea [Fatal]
  - Multi-organ failure [Fatal]
